FAERS Safety Report 25066094 (Version 1)
Quarter: 2025Q1

REPORT INFORMATION
  Report Type: Other
  Country: CA (occurrence: CA)
  Receive Date: 20250312
  Receipt Date: 20250312
  Transmission Date: 20250409
  Serious: Yes (Other)
  Sender: APOTEX
  Company Number: CA-APOTEX-2025AP002879

PATIENT
  Age: 66 Year
  Sex: Female

DRUGS (3)
  1. DILTIAZEM [Suspect]
     Active Substance: DILTIAZEM
     Indication: Hypertension
     Dosage: 1 DOSAGE FORM, QD
     Route: 065
  2. LOZIDE [INDAPAMIDE] [Concomitant]
     Indication: Product used for unknown indication
     Route: 065
  3. MAVIK [Concomitant]
     Active Substance: TRANDOLAPRIL
     Indication: Product used for unknown indication
     Route: 065

REACTIONS (1)
  - Peripheral swelling [Unknown]
